FAERS Safety Report 5316967-3 (Version None)
Quarter: 2007Q2

REPORT INFORMATION
  Report Type: 
  Country: None (occurrence: None)
  Receive Date: 20070504
  Receipt Date: 20070430
  Transmission Date: 20071010
  Serious: Yes (Hospitalization, Other)
  Sender: FDA-Public Use
  Company Number: NLWYE745615JUN05

PATIENT
  Sex: Male

DRUGS (11)
  1. RAPAMUNE [Suspect]
     Indication: PROPHYLAXIS AGAINST TRANSPLANT REJECTION
     Dosage: LOADING DOSE OF 15 MG
     Route: 048
     Dates: start: 20041001, end: 20041001
  2. RAPAMUNE [Suspect]
     Dosage: LOADING DOSE OF 12 MG
     Route: 048
     Dates: start: 20041001, end: 20041001
  3. RAPAMUNE [Suspect]
     Route: 048
     Dates: start: 20041001, end: 20041025
  4. RAPAMUNE [Suspect]
     Dosage: UNKNOWN
     Route: 048
     Dates: start: 20041026, end: 20041227
  5. PREDNISOLONE [Suspect]
     Dosage: 120 MG TAPERED TO 30 MG BY DAY 8
     Dates: start: 20041001, end: 20041001
  6. PREDNISOLONE [Suspect]
     Dosage: 27.5 MG BY DAY 21
     Dates: start: 20041001, end: 20041001
  7. PREDNISOLONE [Suspect]
     Dosage: 25 MG BY DAY 30
     Dates: start: 20041001, end: 20041001
  8. PREDNISOLONE [Suspect]
     Dosage: 25 MG TAPERED BY 2.5 MG EACH MONTH TO 7.5 MG DAILY
     Dates: start: 20041101, end: 20050501
  9. MYCOPHENOLATE MOFETIL [Concomitant]
     Indication: PROPHYLAXIS AGAINST TRANSPLANT REJECTION
     Dates: start: 20041001
  10. DACLIZUMAB [Concomitant]
     Indication: PROPHYLAXIS AGAINST TRANSPLANT REJECTION
     Dosage: 2 DOSAGES OF 1MG/KG TEN DAYS APART
     Dates: start: 20041001
  11. METHYLPREDNISOLONE 16MG TAB [Suspect]
     Indication: PROPHYLAXIS AGAINST TRANSPLANT REJECTION
     Dosage: 500 MG
     Dates: start: 20041001, end: 20041001

REACTIONS (6)
  - DIABETES MELLITUS [None]
  - FOLLICULITIS [None]
  - HAEMATOMA [None]
  - IMPAIRED HEALING [None]
  - ORAL CANDIDIASIS [None]
  - WOUND ABSCESS [None]
